FAERS Safety Report 17119309 (Version 1)
Quarter: 2019Q4

REPORT INFORMATION
  Report Type: Spontaneous
  Country: US (occurrence: US)
  Receive Date: 20191206
  Receipt Date: 20191206
  Transmission Date: 20200122
  Serious: No
  Sender: FDA-Public Use
  Company Number: US-UCBSA-2017030353

PATIENT
  Sex: Male
  Weight: 93 kg

DRUGS (1)
  1. KEPPRA [Suspect]
     Active Substance: LEVETIRACETAM
     Indication: SEIZURE
     Dosage: 200 MG, 2X/DAY (BID)
     Route: 048

REACTIONS (4)
  - Dizziness [Recovered/Resolved]
  - Drug hypersensitivity [Unknown]
  - Swelling [Recovered/Resolved]
  - Malaise [Recovered/Resolved]
